FAERS Safety Report 7655015-7 (Version None)
Quarter: 2011Q3

REPORT INFORMATION
  Report Type: 
  Country: None (occurrence: None)
  Receive Date: 20110803
  Receipt Date: 20110803
  Transmission Date: 20111222
  Serious: Yes (Hospitalization)
  Sender: FDA-Public Use
  Company Number: None

PATIENT
  Sex: Male
  Weight: 122 kg

DRUGS (4)
  1. TAXOL [Suspect]
     Dosage: 360 MG
  2. CARBOPLATIN [Suspect]
     Dosage: 600 MG
  3. PACLITAXEL [Suspect]
     Dosage: 980 MG
  4. CARBOPLATIN [Suspect]
     Dosage: 1580 MG

REACTIONS (9)
  - DECREASED APPETITE [None]
  - MUCOSAL INFLAMMATION [None]
  - INTESTINAL PERFORATION [None]
  - APHAGIA [None]
  - CLOSTRIDIAL INFECTION [None]
  - WEIGHT DECREASED [None]
  - LEUKOPENIA [None]
  - DIARRHOEA [None]
  - DYSGEUSIA [None]
